FAERS Safety Report 8336541-4 (Version None)
Quarter: 2012Q2

REPORT INFORMATION
  Report Type: 
  Country: None (occurrence: None)
  Receive Date: 20120501
  Receipt Date: 20120418
  Transmission Date: 20120825
  Serious: Yes (Other)
  Sender: FDA-Public Use
  Company Number: CA-1191797

PATIENT
  Sex: Female

DRUGS (1)
  1. SYSTANE EYE DROPS (SYSTANE ULTRA) [Suspect]
     Dosage: (OPHTHALMIC)
     Route: 047

REACTIONS (1)
  - DRUG HYPERSENSITIVITY [None]
